FAERS Safety Report 23053347 (Version 1)
Quarter: 2023Q4

REPORT INFORMATION
  Report Type: Spontaneous
  Country: US (occurrence: US)
  Receive Date: 20231011
  Receipt Date: 20231011
  Transmission Date: 20240109
  Serious: Yes (Other)
  Sender: FDA-Public Use
  Company Number: US-APOTEX-2023AP014937

PATIENT
  Age: 27 Year
  Sex: Female

DRUGS (2)
  1. CYCLOSPORINE [Suspect]
     Active Substance: CYCLOSPORINE
     Indication: Aplastic anaemia
     Dosage: 225 MILLIGRAM, QD, (3.1 MG/KG)
     Route: 065
  2. DAPSONE [Concomitant]
     Active Substance: DAPSONE
     Indication: Antifungal prophylaxis
     Dosage: 100 MILLIGRAM, QD
     Route: 065

REACTIONS (1)
  - Linear IgA disease [Recovered/Resolved]
